FAERS Safety Report 15982652 (Version 1)
Quarter: 2019Q1

REPORT INFORMATION
  Report Type: Spontaneous
  Country: JP (occurrence: JP)
  Receive Date: 20190219
  Receipt Date: 20190219
  Transmission Date: 20190418
  Serious: Yes (Other)
  Sender: FDA-Public Use
  Company Number: JP-PFIZER INC-2019062662

PATIENT
  Sex: Female

DRUGS (2)
  1. AMLODIPINE BESILATE [Suspect]
     Active Substance: AMLODIPINE BESYLATE
     Dosage: UNK
     Route: 048
  2. VALSARTAN. [Suspect]
     Active Substance: VALSARTAN
     Dosage: UNK
     Route: 048
     Dates: start: 201812

REACTIONS (3)
  - Cystitis [Recovering/Resolving]
  - Dysuria [Recovering/Resolving]
  - Vulvovaginal pruritus [Recovering/Resolving]

NARRATIVE: CASE EVENT DATE: 201812
